FAERS Safety Report 7917351-6 (Version None)
Quarter: 2011Q4

REPORT INFORMATION
  Report Type: 
  Country: None (occurrence: None)
  Receive Date: 20111116
  Receipt Date: 20111109
  Transmission Date: 20120403
  Serious: Yes (Other)
  Sender: FDA-Public Use
  Company Number: PHHY2011US10240

PATIENT
  Sex: Female

DRUGS (6)
  1. CLONIDINE [Concomitant]
  2. MECLIZINE [Concomitant]
  3. LOTREL [Concomitant]
  4. ZOCOR [Concomitant]
  5. CLORAZEPATE DIPOTASSIUM [Concomitant]
  6. FEMARA [Suspect]
     Indication: BREAST CANCER
     Dosage: 2.5 MG, DAILY
     Route: 048
     Dates: start: 20100501

REACTIONS (13)
  - NAUSEA [None]
  - OSTEOPOROSIS [None]
  - SINUSITIS [None]
  - SUNBURN [None]
  - DIZZINESS [None]
  - BONE PAIN [None]
  - GASTRIC ULCER [None]
  - OSTEOARTHRITIS [None]
  - HOT FLUSH [None]
  - INSOMNIA [None]
  - ABDOMINAL DISCOMFORT [None]
  - NIGHT SWEATS [None]
  - FATIGUE [None]
